FAERS Safety Report 14974740 (Version 7)
Quarter: 2025Q4

REPORT INFORMATION
  Report Type: Spontaneous
  Country: EU (occurrence: EU)
  Receive Date: 20180605
  Receipt Date: 20251024
  Transmission Date: 20260118
  Serious: Yes (Life-Threatening, Other)
  Sender: MYLAN
  Company Number: EU-HACPHARMA-201800035

PATIENT
  Age: 68 Year
  Sex: Male
  Weight: 112 kg

DRUGS (80)
  1. VENLAFAXINE HYDROCHLORIDE [Suspect]
     Active Substance: VENLAFAXINE HYDROCHLORIDE
     Indication: Narcolepsy
     Dosage: 75 MG, 1X/DAY REGIMEN DOSE UNIT: MILLIGRAM
     Dates: start: 2012
  2. VENLAFAXINE HYDROCHLORIDE [Suspect]
     Active Substance: VENLAFAXINE HYDROCHLORIDE
     Dosage: 75 MG, 1X/DAY REGIMEN DOSE UNIT: MILLIGRAM
     Route: 065
     Dates: start: 2012
  3. VENLAFAXINE HYDROCHLORIDE [Suspect]
     Active Substance: VENLAFAXINE HYDROCHLORIDE
     Dosage: 75 MG, 1X/DAY REGIMEN DOSE UNIT: MILLIGRAM
     Route: 065
     Dates: start: 2012
  4. VENLAFAXINE HYDROCHLORIDE [Suspect]
     Active Substance: VENLAFAXINE HYDROCHLORIDE
     Dosage: 75 MG, 1X/DAY REGIMEN DOSE UNIT: MILLIGRAM
     Dates: start: 2012
  5. VENLAFAXINE HCL [Interacting]
     Active Substance: VENLAFAXINE HYDROCHLORIDE
     Indication: Narcolepsy
     Dosage: 300 MG, UNK
  6. VENLAFAXINE HCL [Interacting]
     Active Substance: VENLAFAXINE HYDROCHLORIDE
     Dosage: 300 MG, UNK
     Route: 048
  7. VENLAFAXINE HCL [Interacting]
     Active Substance: VENLAFAXINE HYDROCHLORIDE
     Dosage: 300 MG, UNK
     Route: 048
  8. VENLAFAXINE HCL [Interacting]
     Active Substance: VENLAFAXINE HYDROCHLORIDE
     Dosage: 300 MG, UNK
  9. METFORMIN HYDROCHLORIDE [Interacting]
     Active Substance: METFORMIN HYDROCHLORIDE
     Indication: Diabetes mellitus
     Dosage: 3 G, UNK
  10. METFORMIN HYDROCHLORIDE [Interacting]
     Active Substance: METFORMIN HYDROCHLORIDE
     Dosage: 3 G, UNK
     Route: 048
  11. METFORMIN HYDROCHLORIDE [Interacting]
     Active Substance: METFORMIN HYDROCHLORIDE
     Dosage: 3 G, UNK
     Route: 048
  12. METFORMIN HYDROCHLORIDE [Interacting]
     Active Substance: METFORMIN HYDROCHLORIDE
     Dosage: 3 G, UNK
  13. DEXTROAMPHETAMINE SULFATE [Interacting]
     Active Substance: DEXTROAMPHETAMINE SULFATE
     Indication: Narcolepsy
     Dosage: 5 MG,ONCE DAILY
     Dates: start: 20171121, end: 20171220
  14. DEXTROAMPHETAMINE SULFATE [Interacting]
     Active Substance: DEXTROAMPHETAMINE SULFATE
     Dosage: 5 MG,ONCE DAILY
     Dates: start: 20171121, end: 20171220
  15. DEXTROAMPHETAMINE SULFATE [Interacting]
     Active Substance: DEXTROAMPHETAMINE SULFATE
     Dosage: 5 MG,ONCE DAILY
     Route: 048
     Dates: start: 20171121, end: 20171220
  16. DEXTROAMPHETAMINE SULFATE [Interacting]
     Active Substance: DEXTROAMPHETAMINE SULFATE
     Dosage: 5 MG,ONCE DAILY
     Route: 048
     Dates: start: 20171121, end: 20171220
  17. DEXTROAMPHETAMINE SULFATE [Interacting]
     Active Substance: DEXTROAMPHETAMINE SULFATE
     Dosage: UNK
  18. DEXTROAMPHETAMINE SULFATE [Interacting]
     Active Substance: DEXTROAMPHETAMINE SULFATE
     Dosage: UNK
  19. DEXTROAMPHETAMINE SULFATE [Interacting]
     Active Substance: DEXTROAMPHETAMINE SULFATE
     Dosage: UNK
     Route: 048
  20. DEXTROAMPHETAMINE SULFATE [Interacting]
     Active Substance: DEXTROAMPHETAMINE SULFATE
     Dosage: UNK
     Route: 048
  21. DEXTROAMPHETAMINE SULFATE [Interacting]
     Active Substance: DEXTROAMPHETAMINE SULFATE
     Dosage: 20 MG, 1X/DAY
     Dates: start: 20171114, end: 20180419
  22. DEXTROAMPHETAMINE SULFATE [Interacting]
     Active Substance: DEXTROAMPHETAMINE SULFATE
     Dosage: 20 MG, 1X/DAY
     Route: 048
     Dates: start: 20171114, end: 20180419
  23. DEXTROAMPHETAMINE SULFATE [Interacting]
     Active Substance: DEXTROAMPHETAMINE SULFATE
     Dosage: 20 MG, 1X/DAY
     Dates: start: 20171114, end: 20180419
  24. DEXTROAMPHETAMINE SULFATE [Interacting]
     Active Substance: DEXTROAMPHETAMINE SULFATE
     Dosage: 20 MG, 1X/DAY
     Route: 048
     Dates: start: 20171114, end: 20180419
  25. POTASSIUM CHLORIDE [Suspect]
     Active Substance: POTASSIUM CHLORIDE
     Indication: Product used for unknown indication
     Dosage: 1000 MG, ONCE DAILY (1 DF, ONCE DAILY) REGIMEN DOSE UNIT: MILLIGRAM
  26. POTASSIUM CHLORIDE [Suspect]
     Active Substance: POTASSIUM CHLORIDE
     Dosage: 1000 MG, ONCE DAILY (1 DF, ONCE DAILY) REGIMEN DOSE UNIT: MILLIGRAM
     Route: 065
  27. POTASSIUM CHLORIDE [Suspect]
     Active Substance: POTASSIUM CHLORIDE
     Dosage: 1000 MG, ONCE DAILY (1 DF, ONCE DAILY) REGIMEN DOSE UNIT: MILLIGRAM
     Route: 065
  28. POTASSIUM CHLORIDE [Suspect]
     Active Substance: POTASSIUM CHLORIDE
     Dosage: 1000 MG, ONCE DAILY (1 DF, ONCE DAILY) REGIMEN DOSE UNIT: MILLIGRAM
  29. ZYPREXA [Suspect]
     Active Substance: OLANZAPINE
     Indication: Sleep disorder
     Dosage: 5 MG, ONCE DAILY REGIMEN DOSE UNIT: MILLIGRAM
  30. ZYPREXA [Suspect]
     Active Substance: OLANZAPINE
     Dosage: 5 MG, ONCE DAILY REGIMEN DOSE UNIT: MILLIGRAM
     Route: 065
  31. ZYPREXA [Suspect]
     Active Substance: OLANZAPINE
     Dosage: 5 MG, ONCE DAILY REGIMEN DOSE UNIT: MILLIGRAM
     Route: 065
  32. ZYPREXA [Suspect]
     Active Substance: OLANZAPINE
     Dosage: 5 MG, ONCE DAILY REGIMEN DOSE UNIT: MILLIGRAM
  33. HYDROCHLOROTHIAZIDE [Suspect]
     Active Substance: HYDROCHLOROTHIAZIDE
     Indication: Hypertension
     Dosage: 25 MG, UNK
  34. HYDROCHLOROTHIAZIDE [Suspect]
     Active Substance: HYDROCHLOROTHIAZIDE
     Dosage: 25 MG, UNK
     Route: 048
  35. HYDROCHLOROTHIAZIDE [Suspect]
     Active Substance: HYDROCHLOROTHIAZIDE
     Dosage: 25 MG, UNK
     Route: 048
  36. HYDROCHLOROTHIAZIDE [Suspect]
     Active Substance: HYDROCHLOROTHIAZIDE
     Dosage: 25 MG, UNK
  37. VICTOZA [Suspect]
     Active Substance: LIRAGLUTIDE
     Indication: Diabetes mellitus
     Dosage: 0.6 MG, UNK
  38. VICTOZA [Suspect]
     Active Substance: LIRAGLUTIDE
     Dosage: 0.6 MG, UNK
     Route: 058
  39. VICTOZA [Suspect]
     Active Substance: LIRAGLUTIDE
     Dosage: 0.6 MG, UNK
     Route: 058
  40. VICTOZA [Suspect]
     Active Substance: LIRAGLUTIDE
     Dosage: 0.6 MG, UNK
  41. ROSUVASTATIN [Suspect]
     Active Substance: ROSUVASTATIN
     Indication: Hypercholesterolaemia
     Dosage: 5 MG, UNK
  42. ROSUVASTATIN [Suspect]
     Active Substance: ROSUVASTATIN
     Dosage: 5 MG, UNK
     Route: 048
  43. ROSUVASTATIN [Suspect]
     Active Substance: ROSUVASTATIN
     Dosage: 5 MG, UNK
     Route: 048
  44. ROSUVASTATIN [Suspect]
     Active Substance: ROSUVASTATIN
     Dosage: 5 MG, UNK
  45. OLANZAPINE [Interacting]
     Active Substance: OLANZAPINE
     Indication: Product used for unknown indication
     Dosage: 5 MG, UNK
  46. OLANZAPINE [Interacting]
     Active Substance: OLANZAPINE
     Dosage: 5 MG, UNK
     Route: 048
  47. OLANZAPINE [Interacting]
     Active Substance: OLANZAPINE
     Dosage: 5 MG, UNK
     Route: 048
  48. OLANZAPINE [Interacting]
     Active Substance: OLANZAPINE
     Dosage: 5 MG, UNK
  49. POTASSIUM CHLORIDE [Suspect]
     Active Substance: POTASSIUM CHLORIDE
     Indication: Product used for unknown indication
     Dosage: 1 G, UNK
  50. POTASSIUM CHLORIDE [Suspect]
     Active Substance: POTASSIUM CHLORIDE
     Dosage: 1 G, UNK
     Route: 042
  51. POTASSIUM CHLORIDE [Suspect]
     Active Substance: POTASSIUM CHLORIDE
     Dosage: 1 G, UNK
     Route: 042
  52. POTASSIUM CHLORIDE [Suspect]
     Active Substance: POTASSIUM CHLORIDE
     Dosage: 1 G, UNK
  53. LANTUS [Suspect]
     Active Substance: INSULIN GLARGINE
     Indication: Diabetes mellitus
     Dosage: 52 IU, UNK
  54. LANTUS [Suspect]
     Active Substance: INSULIN GLARGINE
     Dosage: 52 IU, UNK
     Route: 058
  55. LANTUS [Suspect]
     Active Substance: INSULIN GLARGINE
     Dosage: 52 IU, UNK
     Route: 058
  56. LANTUS [Suspect]
     Active Substance: INSULIN GLARGINE
     Dosage: 52 IU, UNK
  57. IRBESARTAN [Interacting]
     Active Substance: IRBESARTAN
     Indication: Hypertension
     Dosage: 300 MG, UNK
  58. IRBESARTAN [Interacting]
     Active Substance: IRBESARTAN
     Dosage: 300 MG, UNK
     Route: 048
  59. IRBESARTAN [Interacting]
     Active Substance: IRBESARTAN
     Dosage: 300 MG, UNK
     Route: 048
  60. IRBESARTAN [Interacting]
     Active Substance: IRBESARTAN
     Dosage: 300 MG, UNK
  61. REPAGLINIDE [Suspect]
     Active Substance: REPAGLINIDE
     Indication: Diabetes mellitus
     Dosage: 2 MG, UNK
  62. REPAGLINIDE [Suspect]
     Active Substance: REPAGLINIDE
     Dosage: 2 MG, UNK
     Route: 048
  63. REPAGLINIDE [Suspect]
     Active Substance: REPAGLINIDE
     Dosage: 2 MG, UNK
     Route: 048
  64. REPAGLINIDE [Suspect]
     Active Substance: REPAGLINIDE
     Dosage: 2 MG, UNK
  65. REPAGLINIDE [Concomitant]
     Active Substance: REPAGLINIDE
     Indication: Diabetes mellitus
     Dosage: 4 MG, 1X/DAY (2 DF ONCE DAILY ) REGIMEN DOSE UNIT: MILLIGRAM
     Dates: end: 20180420
  66. REPAGLINIDE [Concomitant]
     Active Substance: REPAGLINIDE
     Dosage: 4 MG, 1X/DAY (2 DF ONCE DAILY ) REGIMEN DOSE UNIT: MILLIGRAM
     Route: 065
     Dates: end: 20180420
  67. REPAGLINIDE [Concomitant]
     Active Substance: REPAGLINIDE
     Dosage: 4 MG, 1X/DAY (2 DF ONCE DAILY ) REGIMEN DOSE UNIT: MILLIGRAM
     Route: 065
     Dates: end: 20180420
  68. REPAGLINIDE [Concomitant]
     Active Substance: REPAGLINIDE
     Dosage: 4 MG, 1X/DAY (2 DF ONCE DAILY ) REGIMEN DOSE UNIT: MILLIGRAM
     Dates: end: 20180420
  69. LIRAGLUTIDE [Concomitant]
     Active Substance: LIRAGLUTIDE
     Indication: Diabetes mellitus
     Dosage: 10 IU, UNK
  70. LIRAGLUTIDE [Concomitant]
     Active Substance: LIRAGLUTIDE
     Dosage: 10 IU, UNK
     Route: 065
  71. LIRAGLUTIDE [Concomitant]
     Active Substance: LIRAGLUTIDE
     Dosage: 10 IU, UNK
     Route: 065
  72. LIRAGLUTIDE [Concomitant]
     Active Substance: LIRAGLUTIDE
     Dosage: 10 IU, UNK
  73. INSULIN NOS [Concomitant]
     Active Substance: INSULIN NOS
     Indication: Product used for unknown indication
     Dosage: UNK
  74. INSULIN NOS [Concomitant]
     Active Substance: INSULIN NOS
     Dosage: UNK
     Route: 065
  75. INSULIN NOS [Concomitant]
     Active Substance: INSULIN NOS
     Dosage: UNK
     Route: 065
  76. INSULIN NOS [Concomitant]
     Active Substance: INSULIN NOS
     Dosage: UNK
  77. GLUCOPHAGE [Concomitant]
     Active Substance: METFORMIN HYDROCHLORIDE
     Indication: Diabetes mellitus
     Dosage: 1000 MG, ONCE DAILY (1 DF ONCE DAILY ) REGIMEN DOSE UNIT: MILLIGRAM
  78. GLUCOPHAGE [Concomitant]
     Active Substance: METFORMIN HYDROCHLORIDE
     Dosage: 1000 MG, ONCE DAILY (1 DF ONCE DAILY ) REGIMEN DOSE UNIT: MILLIGRAM
     Route: 065
  79. GLUCOPHAGE [Concomitant]
     Active Substance: METFORMIN HYDROCHLORIDE
     Dosage: 1000 MG, ONCE DAILY (1 DF ONCE DAILY ) REGIMEN DOSE UNIT: MILLIGRAM
     Route: 065
  80. GLUCOPHAGE [Concomitant]
     Active Substance: METFORMIN HYDROCHLORIDE
     Dosage: 1000 MG, ONCE DAILY (1 DF ONCE DAILY ) REGIMEN DOSE UNIT: MILLIGRAM

REACTIONS (10)
  - Atrial fibrillation [Recovering/Resolving]
  - Extrasystoles [Recovering/Resolving]
  - Supraventricular extrasystoles [Recovering/Resolving]
  - Discomfort [Recovered/Resolved]
  - Chest pain [Recovered/Resolved]
  - Dyspnoea [Recovered/Resolved]
  - Drug interaction [Recovering/Resolving]
  - Cardio-respiratory arrest [Recovering/Resolving]
  - Ventricular fibrillation [Recovering/Resolving]
  - Product use in unapproved indication [Unknown]

NARRATIVE: CASE EVENT DATE: 20120101
